FAERS Safety Report 6810367-2 (Version None)
Quarter: 2010Q2

REPORT INFORMATION
  Report Type: 
  Country: None (occurrence: None)
  Receive Date: 20100630
  Receipt Date: 20100616
  Transmission Date: 20101027
  Serious: Yes (Other)
  Sender: FDA-Public Use
  Company Number: PHHY2010US39622

PATIENT
  Sex: Male
  Weight: 75.737 kg

DRUGS (39)
  1. RECLAST [Suspect]
     Indication: OSTEOPOROSIS
     Dosage: ONCE A YEAR
     Dates: start: 20090428
  2. NEXIUM [Concomitant]
     Dosage: 40 MG, BID
  3. ZANTAC [Concomitant]
     Dosage: 75 MG, BID
  4. MULTI-VITAMIN [Concomitant]
     Dosage: DAILY
  5. WELLBUTRIN SR [Concomitant]
     Dosage: 150 MG, BID
  6. AVODART [Concomitant]
     Dosage: 0.5 MG, QD
  7. LORAZEPAM [Concomitant]
     Dosage: 1 MG, BID
  8. VIAGRA [Concomitant]
     Dosage: 50 MG, PRN
  9. CALCIUM CARBONATE [Concomitant]
  10. MIRALAX [Concomitant]
     Dosage: ONE CUPFUL IN GLASS OF WATER
  11. VITAMIN D [Concomitant]
     Dosage: 2000 IU, QD
  12. ASPIRIN [Concomitant]
     Dosage: 81 MG, QD
  13. ALBUTEROL [Concomitant]
     Dosage: 3-4 TIMES PER DAY
  14. CRESTOR [Concomitant]
     Dosage: 20 MG 1/2 ALTERNATING WITH 10 MG
  15. PERCOCET [Concomitant]
     Dosage: 5/500 MG PRN
  16. PANCRELIPASE [Concomitant]
     Dosage: 20 MG, TID
  17. NORVASC [Concomitant]
     Dosage: 5 MG, QD
  18. AMBIEN [Concomitant]
     Dosage: UNK
  19. FORTEO [Concomitant]
     Dosage: UNK
  20. CARAFATE [Concomitant]
     Dosage: 1 GM 4 TIMES A DAY
  21. HIBICLENS [Concomitant]
  22. ZELNORM [Concomitant]
  23. TRAMADOL [Concomitant]
     Dosage: UNK
  24. COLACE [Concomitant]
  25. BONIVA [Concomitant]
  26. ADVAIR DISKUS 100/50 [Concomitant]
     Dosage: 250/50 ONE PUFF BID
  27. ADVAIR DISKUS 100/50 [Concomitant]
     Dosage: 1 PUFF PER DAY
  28. MIACALCIN [Concomitant]
  29. CYMBALTA [Concomitant]
     Dosage: UNK
  30. SPIRIVA [Concomitant]
     Dosage: UNK
     Dates: start: 20080811
  31. DIOVAN HCT [Concomitant]
     Dosage: 320/25 ONCE A DAY
  32. COREG CR [Concomitant]
     Dosage: 40 MG, QD
  33. COLESTID [Concomitant]
     Dosage: 5 GM BEFORE LARGEST MEAL
  34. AMITIZA [Concomitant]
     Dosage: 8 MG
  35. ZOSTAVAX [Concomitant]
     Dates: start: 20081108, end: 20081108
  36. ZOSTAVAX [Concomitant]
     Dates: start: 20090901, end: 20090901
  37. FLU VACCINE [Concomitant]
     Dates: start: 20050101, end: 20050101
  38. FLU VACCINE [Concomitant]
     Dates: start: 20090901, end: 20090901
  39. PROSTATE SPECIFIC ANTIGEN [Concomitant]
     Dosage: UNK
     Dates: start: 20060101

REACTIONS (5)
  - COGNITIVE DISORDER [None]
  - CONSTIPATION [None]
  - DIARRHOEA [None]
  - GASTROOESOPHAGEAL REFLUX DISEASE [None]
  - HEADACHE [None]
